FAERS Safety Report 12514192 (Version 3)
Quarter: 2016Q3

REPORT INFORMATION
  Report Type: Spontaneous
  Country: US (occurrence: US)
  Receive Date: 20160630
  Receipt Date: 20160809
  Transmission Date: 20161109
  Serious: Yes (Hospitalization)
  Sender: FDA-Public Use
  Company Number: US-JNJFOC-20160527785

PATIENT
  Age: 61 Year
  Sex: Male

DRUGS (4)
  1. XARELTO [Suspect]
     Active Substance: RIVAROXABAN
     Indication: DEEP VEIN THROMBOSIS
     Route: 048
     Dates: end: 20140413
  2. PLAVIX [Suspect]
     Active Substance: CLOPIDOGREL BISULFATE
     Indication: EMBOLISM
     Route: 048
     Dates: end: 20140413
  3. ASPIRIN. [Suspect]
     Active Substance: ASPIRIN
     Indication: PRODUCT USED FOR UNKNOWN INDICATION
     Route: 048
     Dates: end: 20140413
  4. XARELTO [Suspect]
     Active Substance: RIVAROXABAN
     Indication: DEEP VEIN THROMBOSIS
     Route: 048
     Dates: start: 20140319

REACTIONS (3)
  - Hypovolaemic shock [Unknown]
  - Upper gastrointestinal haemorrhage [Recovered/Resolved]
  - Acute kidney injury [Unknown]

NARRATIVE: CASE EVENT DATE: 20140413
